FAERS Safety Report 15515558 (Version 1)
Quarter: 2018Q4

REPORT INFORMATION
  Report Type: Spontaneous
  Country: US (occurrence: US)
  Receive Date: 20181017
  Receipt Date: 20181017
  Transmission Date: 20190205
  Serious: No
  Sender: FDA-Public Use
  Company Number: US-BAUSCH-BL-2018-027022

PATIENT
  Sex: Female

DRUGS (1)
  1. ZIRGAN [Suspect]
     Active Substance: GANCICLOVIR
     Indication: VIRAL INFECTION
     Dosage: 1 DROP 4 TIMES A DAY IN THE RIGHT EYE
     Route: 047
     Dates: start: 201809

REACTIONS (1)
  - Vision blurred [Unknown]

NARRATIVE: CASE EVENT DATE: 201809
